FAERS Safety Report 20951523 (Version 1)
Quarter: 2022Q2

REPORT INFORMATION
  Report Type: Spontaneous
  Country: US (occurrence: None)
  Receive Date: 20220613
  Receipt Date: 20220613
  Transmission Date: 20220720
  Serious: Yes (Hospitalization)
  Sender: FDA-Public Use
  Company Number: None

PATIENT
  Age: 49 Year
  Sex: Female

DRUGS (1)
  1. BENLYSTA [Suspect]
     Active Substance: BELIMUMAB
     Indication: Polyarthritis
     Dosage: FREQUENCY : WEEKLY;?
     Route: 058
     Dates: start: 20220113

REACTIONS (3)
  - Joint swelling [None]
  - Arthralgia [None]
  - Condition aggravated [None]

NARRATIVE: CASE EVENT DATE: 20220610
